FAERS Safety Report 17439498 (Version 1)
Quarter: 2020Q1

REPORT INFORMATION
  Report Type: Spontaneous
  Country: IN (occurrence: IN)
  Receive Date: 20200220
  Receipt Date: 20200220
  Transmission Date: 20200409
  Serious: Yes (Hospitalization, Other)
  Sender: FDA-Public Use
  Company Number: IN-AXELLIA-002984

PATIENT
  Age: 46 Year
  Sex: Male

DRUGS (7)
  1. PYRAZINAMIDE. [Concomitant]
     Active Substance: PYRAZINAMIDE
     Indication: TUBERCULOSIS
  2. COLISTIN [Suspect]
     Active Substance: COLISTIN
     Indication: ACINETOBACTER INFECTION
     Dosage: DIVIDED INTO THREE DOSES THROUGHOUT THE DAY
     Route: 042
  3. ISONIAZID/ISONIAZID CALCIUM PYRUVINATE/ISONIAZID SODIUM GLUCURONATE [Concomitant]
     Active Substance: ISONIAZID
     Indication: TUBERCULOSIS
  4. ETHAMBUTOL [Concomitant]
     Active Substance: ETHAMBUTOL HYDROCHLORIDE
     Indication: TUBERCULOSIS
  5. RIFAMPICIN [Concomitant]
     Active Substance: RIFAMPIN
     Indication: TUBERCULOSIS
  6. TEICOPLANIN [Concomitant]
     Active Substance: TEICOPLANIN
     Indication: FOURNIER^S GANGRENE
  7. IMIPENEM [Concomitant]
     Active Substance: IMIPENEM
     Indication: ACINETOBACTER INFECTION

REACTIONS (1)
  - Bartter^s syndrome [Recovered/Resolved]
